FAERS Safety Report 18397542 (Version 1)
Quarter: 2020Q4

REPORT INFORMATION
  Report Type: Spontaneous
  Country: US (occurrence: US)
  Receive Date: 20201017
  Receipt Date: 20201017
  Transmission Date: 20210114
  Serious: No
  Sender: FDA-Public Use
  Company Number: None

PATIENT
  Age: 73 Year
  Sex: Female
  Weight: 81.65 kg

DRUGS (8)
  1. GLUCOSIMINE [Concomitant]
  2. ALBUTEROL. [Concomitant]
     Active Substance: ALBUTEROL
  3. ALBUTEROL SULFATE INHALATION AEROSOL [Suspect]
     Active Substance: ALBUTEROL SULFATE
  4. NEBULIZER [Concomitant]
     Active Substance: DEVICE
  5. DAILY VITAMIN [Concomitant]
     Active Substance: VITAMINS
  6. ADVAIR HFA [Concomitant]
     Active Substance: FLUTICASONE PROPIONATE\SALMETEROL XINAFOATE
  7. IPITROPIUM [Concomitant]
  8. GO-PO [Concomitant]

REACTIONS (3)
  - Incorrect dose administered by device [None]
  - Recalled product administered [None]
  - Drug delivery system malfunction [None]
